FAERS Safety Report 9093794 (Version 1)
Quarter: 2013Q1

REPORT INFORMATION
  Report Type: Report from Study
  Country: US (occurrence: US)
  Receive Date: 20130131
  Receipt Date: 20130131
  Transmission Date: 20140127
  Serious: No
  Sender: FDA-Public Use
  Company Number: US-ABBOTT-12P-163-1010172-00

PATIENT
  Age: 39 Year
  Sex: Female

DRUGS (3)
  1. HUMIRA [Suspect]
     Indication: CROHN^S DISEASE
     Dates: start: 201208
  2. HUMIRA [Suspect]
     Indication: RHEUMATOID ARTHRITIS
  3. TYLENOL [Concomitant]
     Indication: ARTHRALGIA
     Dates: start: 201211

REACTIONS (1)
  - Arthralgia [Not Recovered/Not Resolved]
